FAERS Safety Report 7275943-4 (Version None)
Quarter: 2011Q1

REPORT INFORMATION
  Report Type: 
  Country: None (occurrence: None)
  Receive Date: 20110204
  Receipt Date: 20110127
  Transmission Date: 20110831
  Serious: Yes (Hospitalization)
  Sender: FDA-Public Use
  Company Number: A0909846A

PATIENT
  Age: 62 Year
  Sex: Female

DRUGS (4)
  1. AVANDIA [Suspect]
     Dosage: 8MG PER DAY
     Route: 048
     Dates: start: 19990101, end: 20060606
  2. ALBUTEROL [Concomitant]
  3. SYMBICORT [Concomitant]
  4. LASIX [Concomitant]

REACTIONS (7)
  - MYOCARDIAL INFARCTION [None]
  - DYSPNOEA [None]
  - CARDIOMEGALY [None]
  - PLEURAL EFFUSION [None]
  - JOINT INJURY [None]
  - ASTHMA [None]
  - CARDIAC FAILURE CONGESTIVE [None]
